FAERS Safety Report 10376413 (Version 1)
Quarter: 2014Q3

REPORT INFORMATION
  Report Type: Spontaneous
  Country: US (occurrence: US)
  Receive Date: 20140811
  Receipt Date: 20140811
  Transmission Date: 20150326
  Serious: Yes (Death, Hospitalization, Other)
  Sender: FDA-Public Use
  Company Number: US-B.I. PHARMACEUTICALS,INC./RIDGEFIELD-2014-BI-36169BP

PATIENT
  Age: 76 Year
  Sex: Male

DRUGS (12)
  1. DIOVAN [Concomitant]
     Active Substance: VALSARTAN
     Route: 065
  2. DIGOXIN. [Concomitant]
     Active Substance: DIGOXIN
     Route: 065
  3. FINASTERIDE. [Concomitant]
     Active Substance: FINASTERIDE
     Route: 065
  4. PRADAXA [Suspect]
     Active Substance: DABIGATRAN ETEXILATE MESYLATE
     Indication: ATRIAL FIBRILLATION
     Route: 065
  5. METOPROLOL [Concomitant]
     Active Substance: METOPROLOL
     Route: 065
  6. LOW DOSE ASPIRIN [Concomitant]
     Active Substance: ASPIRIN
     Route: 065
  7. LASIX [Concomitant]
     Active Substance: FUROSEMIDE
     Route: 065
  8. POTASSIUM [Concomitant]
     Active Substance: POTASSIUM
     Route: 065
  9. METANX [Concomitant]
     Active Substance: LEVOMEFOLATE CALCIUM\METHYLCOBALAMIN\PYRIDOXAL PHOSPHATE ANHYDROUS
     Route: 065
  10. NEXIUM [Concomitant]
     Active Substance: ESOMEPRAZOLE MAGNESIUM
     Route: 065
  11. TERAZOSIN [Concomitant]
     Active Substance: TERAZOSIN\TERAZOSIN HYDROCHLORIDE
     Route: 065
  12. ADVAIR HFA [Concomitant]
     Active Substance: FLUTICASONE PROPIONATE\SALMETEROL XINAFOATE
     Route: 065

REACTIONS (3)
  - Fall [Unknown]
  - Craniocerebral injury [Fatal]
  - Haemorrhage intracranial [Unknown]

NARRATIVE: CASE EVENT DATE: 20111213
